FAERS Safety Report 6182015-9 (Version None)
Quarter: 2009Q2

REPORT INFORMATION
  Report Type: 
  Country: None (occurrence: None)
  Receive Date: 20090505
  Receipt Date: 20090430
  Transmission Date: 20091009
  Serious: Yes (Death, Hospitalization)
  Sender: FDA-Public Use
  Company Number: SP01758

PATIENT
  Age: 77 Year
  Sex: Female

DRUGS (1)
  1. OSMOPREP [Suspect]
     Indication: COLONOSCOPY
     Dosage: ORAL
     Route: 048
     Dates: start: 20061112

REACTIONS (7)
  - DIALYSIS [None]
  - DIVERTICULITIS [None]
  - HYPERTENSION [None]
  - NEPHROCALCINOSIS [None]
  - PNEUMONIA [None]
  - RENAL FAILURE ACUTE [None]
  - SEPSIS [None]
